FAERS Safety Report 14190731 (Version 19)
Quarter: 2019Q4

REPORT INFORMATION
  Report Type: Report from Study
  Country: US (occurrence: US)
  Receive Date: 20171115
  Receipt Date: 20191021
  Transmission Date: 20200122
  Serious: Yes (Other)
  Sender: FDA-Public Use
  Company Number: US-SA-2017SA004346

PATIENT
  Age: 53 Year
  Sex: Female

DRUGS (2)
  1. ALGLUCOSIDASE ALFA [Suspect]
     Active Substance: ALGLUCOSIDASE ALFA
     Indication: GLYCOGEN STORAGE DISEASE TYPE II
     Dosage: DOSE: 1600.00 (UNITS NOT PROVIDED) FREQUENCY: Q2
     Route: 041
     Dates: start: 20170105
  2. EPIPEN [Concomitant]
     Active Substance: EPINEPHRINE
     Dosage: UNK UNK, UNK
     Route: 065

REACTIONS (72)
  - Diaphragmatic paralysis [Not Recovered/Not Resolved]
  - Retinal tear [Not Recovered/Not Resolved]
  - Appendicectomy [Not Recovered/Not Resolved]
  - Joint swelling [Unknown]
  - Peripheral swelling [Recovered/Resolved]
  - Diarrhoea [Not Recovered/Not Resolved]
  - Vomiting [Recovering/Resolving]
  - Vein disorder [Not Recovered/Not Resolved]
  - Eye infection [Not Recovered/Not Resolved]
  - Initial insomnia [Unknown]
  - Peripheral swelling [Not Recovered/Not Resolved]
  - Injection site pain [Recovered/Resolved]
  - Injection site erythema [Recovered/Resolved]
  - Oxygen saturation decreased [Not Recovered/Not Resolved]
  - Antibody test positive [Unknown]
  - Rotator cuff syndrome [Unknown]
  - Joint injury [Unknown]
  - Limb injury [Recovered/Resolved]
  - Body temperature fluctuation [Unknown]
  - Pain [Recovering/Resolving]
  - Pain in extremity [Recovered/Resolved]
  - Eyelid margin crusting [Not Recovered/Not Resolved]
  - Eye discharge [Not Recovered/Not Resolved]
  - Loss of consciousness [Recovering/Resolving]
  - Urticaria [Recovered/Resolved]
  - Peripheral swelling [Unknown]
  - Condition aggravated [Unknown]
  - Pyrexia [Not Recovered/Not Resolved]
  - Fatigue [Not Recovered/Not Resolved]
  - Musculoskeletal disorder [Unknown]
  - Fatigue [Unknown]
  - Abdominal pain upper [Recovering/Resolving]
  - Kidney infection [Not Recovered/Not Resolved]
  - Gait disturbance [Not Recovered/Not Resolved]
  - Rash [Not Recovered/Not Resolved]
  - Vomiting [Recovering/Resolving]
  - Joint swelling [Not Recovered/Not Resolved]
  - Malaise [Not Recovered/Not Resolved]
  - Unevaluable event [Not Recovered/Not Resolved]
  - Malaise [Not Recovered/Not Resolved]
  - Mobility decreased [Unknown]
  - Fall [Recovered/Resolved]
  - Malaise [Unknown]
  - Dyspnoea [Unknown]
  - Cataract [Not Recovered/Not Resolved]
  - Urinary tract infection [Recovering/Resolving]
  - Hypotension [Unknown]
  - Poor venous access [Not Recovered/Not Resolved]
  - Heart rate irregular [Unknown]
  - Sepsis [Unknown]
  - Injection site pruritus [Recovered/Resolved]
  - Mobility decreased [Not Recovered/Not Resolved]
  - Limb discomfort [Not Recovered/Not Resolved]
  - Burning sensation [Unknown]
  - Neuralgia [Not Recovered/Not Resolved]
  - Gastrointestinal infection [Not Recovered/Not Resolved]
  - Vomiting [Not Recovered/Not Resolved]
  - Tremor [Recovering/Resolving]
  - Diarrhoea [Not Recovered/Not Resolved]
  - Pyrexia [Recovering/Resolving]
  - Blood pressure increased [Recovered/Resolved]
  - Decreased appetite [Not Recovered/Not Resolved]
  - Bronchitis [Unknown]
  - Chest discomfort [Unknown]
  - Cellulitis [Unknown]
  - Cholecystectomy [Not Recovered/Not Resolved]
  - Muscle tightness [Recovered/Resolved]
  - Injection site joint warmth [Recovered/Resolved]
  - Blood urine present [Recovering/Resolving]
  - Areflexia [Unknown]
  - Hepatomegaly [Not Recovered/Not Resolved]
  - Entropion [Not Recovered/Not Resolved]

NARRATIVE: CASE EVENT DATE: 2017
